FAERS Safety Report 8472861 (Version 2)
Quarter: 2012Q4

REPORT INFORMATION
  Report Type: Report from Study
  Country: US (occurrence: US)
  Receive Date: 20120322
  Receipt Date: 20121213
  Transmission Date: 20130627
  Serious: Yes (Hospitalization)
  Sender: FDA-Public Use
  Company Number: US-UCBSA-005163

PATIENT
  Age: 55 Year
  Sex: Female
  Weight: 126.1 kg

DRUGS (16)
  1. CIMZIA [Suspect]
     Indication: CROHN^S DISEASE
     Route: 058
     Dates: start: 20091109
  2. BALSALAZIDE [Concomitant]
     Indication: CROHN^S DISEASE
     Dates: start: 20090311
  3. CIPRO [Concomitant]
     Indication: CROHN^S DISEASE
     Dates: start: 20090908
  4. 6-MP [Concomitant]
     Indication: CROHN^S DISEASE
     Dates: start: 20090311
  5. IBUPROFEN [Concomitant]
     Indication: CROHN^S DISEASE
  6. TUMS [Concomitant]
     Indication: CROHN^S DISEASE
  7. LANTUS [Concomitant]
     Indication: DIABETES MELLITUS
     Dosage: DAILY DOSE: 50 U
     Route: 058
     Dates: start: 200607
  8. NOVALOG [Concomitant]
     Indication: DIABETES MELLITUS
     Dosage: 25 U
     Route: 058
     Dates: start: 200607
  9. ZOLOFT [Concomitant]
     Indication: DEPRESSION
     Route: 048
     Dates: start: 200509
  10. LOTREL [Concomitant]
     Indication: HYPERTENSION
     Dosage: 5/20 MG
     Route: 048
     Dates: start: 200109
  11. LOVASTATIN [Concomitant]
     Indication: HYPERLIPIDAEMIA
     Route: 048
     Dates: start: 200709
  12. LEVOTHYROXINE [Concomitant]
     Indication: HYPOTHYROIDISM
     Route: 048
     Dates: start: 200709
  13. JANUVIA [Concomitant]
     Indication: DIABETES MELLITUS
     Route: 048
     Dates: start: 200804
  14. FOLIC ACID [Concomitant]
     Indication: FOLATE DEFICIENCY
     Route: 048
     Dates: start: 200911, end: 20100305
  15. AUGMENTIN [Concomitant]
     Indication: DERMAL CYST
     Dosage: 500/125 MB
     Route: 048
     Dates: start: 20100118, end: 20100130
  16. AUGMENTIN [Concomitant]
     Indication: DERMAL CYST
     Route: 048

REACTIONS (1)
  - Groin abscess [Recovered/Resolved]
